FAERS Safety Report 5602601-1 (Version None)
Quarter: 2008Q1

REPORT INFORMATION
  Report Type: 
  Country: None (occurrence: None)
  Receive Date: 20080125
  Receipt Date: 20080121
  Transmission Date: 20080703
  Serious: Yes (Death, Other)
  Sender: FDA-Public Use
  Company Number: GB-BRISTOL-MYERS SQUIBB COMPANY-14008858

PATIENT
  Age: 42 Year
  Sex: Male

DRUGS (1)
  1. ABILIFY [Suspect]
     Dosage: DOSE WAS REDUCED TO 5 MG
     Dates: end: 20071207

REACTIONS (3)
  - DEATH [None]
  - EXTRAPYRAMIDAL DISORDER [None]
  - NEUROLEPTIC MALIGNANT SYNDROME [None]
